FAERS Safety Report 8789920 (Version 1)
Quarter: 2012Q4

REPORT INFORMATION
  Report Type: 
  Country: CA (occurrence: CA)
  Receive Date: 20120917
  Receipt Date: 20120917
  Transmission Date: 20130627
  Serious: Yes (Hospitalization)
  Sender: FDA-Public Use
  Company Number: CA-JNJFOC-20111101619

PATIENT
  Sex: Female
  Weight: 106 kg

DRUGS (6)
  1. REMICADE [Suspect]
     Indication: CROHN^S DISEASE
     Route: 042
     Dates: start: 201105, end: 20111206
  2. REMICADE [Suspect]
     Indication: CROHN^S DISEASE
     Route: 042
     Dates: start: 20110602
  3. IMURAN [Concomitant]
     Route: 065
  4. SALOFALK [Concomitant]
     Route: 065
  5. PREDNISONE [Concomitant]
     Route: 065
  6. ASA [Concomitant]
     Route: 065

REACTIONS (2)
  - Fistula [Unknown]
  - Intestinal obstruction [Unknown]
